FAERS Safety Report 21868659 (Version 16)
Quarter: 2025Q1

REPORT INFORMATION
  Report Type: Report from Study
  Country: BR (occurrence: BR)
  Receive Date: 20230117
  Receipt Date: 20250128
  Transmission Date: 20250409
  Serious: Yes (Other)
  Sender: NOVARTIS
  Company Number: BR-002147023-NVSC2022BR302671

PATIENT
  Age: 64 Year
  Sex: Female

DRUGS (23)
  1. COSENTYX [Suspect]
     Active Substance: SECUKINUMAB
     Indication: Psoriasis
     Route: 050
     Dates: start: 202211
  2. COSENTYX [Suspect]
     Active Substance: SECUKINUMAB
     Route: 065
     Dates: start: 20221223
  3. COSENTYX [Suspect]
     Active Substance: SECUKINUMAB
     Dosage: UNK, QW (INJECTION NOS)
     Route: 050
     Dates: end: 20221223
  4. COSENTYX [Suspect]
     Active Substance: SECUKINUMAB
     Dosage: UNK, QMO (INJECTION NOS)
     Route: 050
  5. COSENTYX [Suspect]
     Active Substance: SECUKINUMAB
     Dosage: 2 DOSAGE FORM, QMO (INJECTION NOS)
     Route: 050
  6. COSENTYX [Suspect]
     Active Substance: SECUKINUMAB
     Route: 050
     Dates: start: 20230323
  7. COSENTYX [Suspect]
     Active Substance: SECUKINUMAB
     Dosage: UNK, QMO (FORMULATION: PEN) (INJECTION NOS)
     Route: 050
     Dates: start: 20230814
  8. COSENTYX [Suspect]
     Active Substance: SECUKINUMAB
     Route: 050
  9. COSENTYX [Suspect]
     Active Substance: SECUKINUMAB
     Route: 050
  10. COSENTYX [Suspect]
     Active Substance: SECUKINUMAB
     Route: 065
     Dates: end: 20240424
  11. BUDESONIDE\FORMOTEROL FUMARATE [Suspect]
     Active Substance: BUDESONIDE\FORMOTEROL FUMARATE
     Indication: Dyspnoea
     Route: 065
  12. BUDESONIDE\FORMOTEROL FUMARATE [Suspect]
     Active Substance: BUDESONIDE\FORMOTEROL FUMARATE
     Indication: Pneumonia
  13. BUDESONIDE\FORMOTEROL FUMARATE [Suspect]
     Active Substance: BUDESONIDE\FORMOTEROL FUMARATE
     Indication: Bronchitis
  14. RIVOTRIL [Suspect]
     Active Substance: CLONAZEPAM
     Indication: Insomnia
     Route: 065
  15. RIVOTRIL [Suspect]
     Active Substance: CLONAZEPAM
     Route: 065
  16. RIVOTRIL [Suspect]
     Active Substance: CLONAZEPAM
     Route: 065
  17. RIVOTRIL [Suspect]
     Active Substance: CLONAZEPAM
     Route: 065
  18. DIETARY SUPPLEMENT\RESVERATROL [Concomitant]
     Active Substance: DIETARY SUPPLEMENT\RESVERATROL
     Indication: Product used for unknown indication
     Route: 065
     Dates: start: 20220815
  19. L Carnitina [Concomitant]
     Indication: Product used for unknown indication
     Route: 065
     Dates: start: 20221209
  20. CAFFEINE [Concomitant]
     Active Substance: CAFFEINE
     Indication: Product used for unknown indication
     Route: 065
     Dates: start: 20221209
  21. DIAMICRON [Concomitant]
     Indication: Diabetes mellitus
     Route: 065
  22. LOSARTAN POTASSIUM [Concomitant]
     Active Substance: LOSARTAN POTASSIUM
     Indication: Hypertension
     Route: 065
  23. SIMVASTATIN [Concomitant]
     Active Substance: SIMVASTATIN
     Indication: Hypertension
     Route: 065

REACTIONS (63)
  - Acute respiratory distress syndrome [Unknown]
  - Diabetes mellitus [Not Recovered/Not Resolved]
  - Pneumonia [Recovered/Resolved]
  - Pneumonia [Recovered/Resolved]
  - Pyrexia [Recovered/Resolved with Sequelae]
  - Cough [Not Recovered/Not Resolved]
  - Psoriasis [Not Recovered/Not Resolved]
  - Dry skin [Not Recovered/Not Resolved]
  - Pruritus [Not Recovered/Not Resolved]
  - Skin hypertrophy [Not Recovered/Not Resolved]
  - Skin lesion [Not Recovered/Not Resolved]
  - Headache [Not Recovered/Not Resolved]
  - Fatigue [Not Recovered/Not Resolved]
  - Psoriatic arthropathy [Unknown]
  - Dyskinesia [Unknown]
  - Back pain [Unknown]
  - Finger deformity [Unknown]
  - Bone pain [Recovered/Resolved with Sequelae]
  - Abdominal distension [Not Recovered/Not Resolved]
  - Urinary incontinence [Not Recovered/Not Resolved]
  - Asthma [Recovered/Resolved with Sequelae]
  - Dyspnoea [Not Recovered/Not Resolved]
  - Necrosis [Recovered/Resolved]
  - Pigmentation disorder [Not Recovered/Not Resolved]
  - Skin discolouration [Recovered/Resolved with Sequelae]
  - Pain [Not Recovered/Not Resolved]
  - Skin exfoliation [Recovered/Resolved with Sequelae]
  - Malaise [Recovered/Resolved]
  - Viral infection [Unknown]
  - Malaise [Unknown]
  - Sputum discoloured [Recovered/Resolved with Sequelae]
  - Asthenia [Not Recovered/Not Resolved]
  - Confusional state [Not Recovered/Not Resolved]
  - Mental disorder [Unknown]
  - Dysphonia [Not Recovered/Not Resolved]
  - Gait disturbance [Not Recovered/Not Resolved]
  - Memory impairment [Not Recovered/Not Resolved]
  - Nervousness [Unknown]
  - Bronchitis [Recovered/Resolved with Sequelae]
  - Respiratory disorder [Recovered/Resolved]
  - Injection site discharge [Recovered/Resolved]
  - Application site discolouration [Recovered/Resolved]
  - Ecchymosis [Recovered/Resolved]
  - Skin discolouration [Recovered/Resolved]
  - Withdrawal syndrome [Unknown]
  - Feeling abnormal [Unknown]
  - Muscle atrophy [Not Recovered/Not Resolved]
  - Injection site nodule [Recovered/Resolved]
  - Injection site haemorrhage [Recovered/Resolved]
  - Injection site discolouration [Not Recovered/Not Resolved]
  - Product administered at inappropriate site [Recovered/Resolved]
  - Incorrect dose administered by device [Recovered/Resolved]
  - Drug ineffective [Unknown]
  - Pain in extremity [Unknown]
  - Pyrexia [Unknown]
  - Limb discomfort [Unknown]
  - Skin fissures [Unknown]
  - Skin haemorrhage [Unknown]
  - Insomnia [Unknown]
  - Arthralgia [Unknown]
  - Product storage error [Unknown]
  - Emotional distress [Unknown]
  - General physical health deterioration [Unknown]

NARRATIVE: CASE EVENT DATE: 20221201
